FAERS Safety Report 6300004-8 (Version None)
Quarter: 2009Q3

REPORT INFORMATION
  Report Type: 
  Country: None (occurrence: None)
  Receive Date: 20090806
  Receipt Date: 20090729
  Transmission Date: 20100115
  Serious: Yes (Other)
  Sender: FDA-Public Use
  Company Number: US-ELI_LILLY_AND_COMPANY-US200907006881

PATIENT
  Sex: Male

DRUGS (5)
  1. FORTEO [Suspect]
     Dates: start: 20080101
  2. ZOLOFT [Concomitant]
  3. LASIX [Concomitant]
  4. POTASSIUM CHLORIDE [Concomitant]
  5. PREDNISONE [Concomitant]

REACTIONS (2)
  - MALIGNANT MELANOMA [None]
  - SKIN CANCER [None]
